FAERS Safety Report 5720723-1 (Version None)
Quarter: 2008Q2

REPORT INFORMATION
  Report Type: 
  Country: None (occurrence: None)
  Receive Date: 20080425
  Receipt Date: 20080425
  Transmission Date: 20081010
  Serious: No
  Sender: FDA-Public Use
  Company Number: None

PATIENT
  Age: 58 Year
  Sex: Male
  Weight: 85.73 kg

DRUGS (1)
  1. OMEPRAZOLE [Suspect]
     Dosage: 20 MG  EVERY DAY  PO
     Route: 048
     Dates: start: 20080130, end: 20080212

REACTIONS (5)
  - ANGIOEDEMA [None]
  - DRUG LEVEL INCREASED [None]
  - DYSPHAGIA [None]
  - DYSPNOEA [None]
  - SWOLLEN TONGUE [None]
